FAERS Safety Report 10143859 (Version 22)
Quarter: 2018Q4

REPORT INFORMATION
  Report Type: Report from Study
  Country: US (occurrence: US)
  Receive Date: 20140430
  Receipt Date: 20181019
  Transmission Date: 20190204
  Serious: Yes (Other)
  Sender: FDA-Public Use
  Company Number: US-SA-2013SA117700

PATIENT
  Age: 56 Year
  Sex: Female
  Weight: 54 kg

DRUGS (37)
  1. LOPERAMIDE HYDROCHLORIDE. [Concomitant]
     Active Substance: LOPERAMIDE HYDROCHLORIDE
     Dosage: 2.5 MG,UNK
     Dates: start: 201012
  2. REMERON [Concomitant]
     Active Substance: MIRTAZAPINE
     Indication: ANXIETY
     Dosage: 1 DF,UNK
     Dates: start: 201204
  3. LIDOCAINE. [Concomitant]
     Active Substance: LIDOCAINE
     Indication: PAIN
     Dosage: 5% PATCH 1 PATCH DAILY 12 HRS ON/12 OFF
     Dates: start: 201011
  4. MIRALAX [Concomitant]
     Active Substance: POLYETHYLENE GLYCOL 3350
  5. VOLTAREN [DICLOFENAC] [Concomitant]
     Active Substance: DICLOFENAC SODIUM
  6. NEURONTIN [Suspect]
     Active Substance: GABAPENTIN
     Dosage: 300 MG,BID
     Route: 065
  7. VITAMIN D3 [Concomitant]
     Active Substance: CHOLECALCIFEROL
     Dosage: 3000 IU,UNK
     Dates: start: 201011
  8. IRON [Concomitant]
     Active Substance: IRON
     Indication: BLOOD IRON DECREASED
     Dosage: 325 MG,UNK
     Dates: start: 201309
  9. MAGNESIUM GLUCONATE [Concomitant]
     Active Substance: MAGNESIUM GLUCONATE
  10. MIRTAZAPINE. [Concomitant]
     Active Substance: MIRTAZAPINE
  11. ZOLPIDEM TARTRATE. [Concomitant]
     Active Substance: ZOLPIDEM TARTRATE
  12. TERIFLUNOMIDE. [Suspect]
     Active Substance: TERIFLUNOMIDE
     Dosage: 14 MG,QD
     Route: 048
     Dates: start: 20140204
  13. NEURONTIN [Suspect]
     Active Substance: GABAPENTIN
     Dosage: 100 MG,BID
     Route: 065
  14. ALPRAZOLAM. [Concomitant]
     Active Substance: ALPRAZOLAM
     Indication: ANXIETY
     Dosage: 1 MG,TID
     Dates: start: 201008
  15. ZOLPIDEM [Concomitant]
     Active Substance: ZOLPIDEM\ZOLPIDEM TARTRATE
     Indication: SLEEP DISORDER
     Dosage: 10 MG,QD
     Dates: start: 201103
  16. CALCIUM PHOSPHATE DIBASIC [Concomitant]
     Indication: RED BLOOD CELL COUNT DECREASED
     Dosage: 50 MG,BID
     Dates: start: 201011
  17. BENADRYL [Concomitant]
     Active Substance: DIPHENHYDRAMINE HYDROCHLORIDE
     Dosage: UNK
  18. PYRIDIUM [Concomitant]
     Active Substance: PHENAZOPYRIDINE
  19. ESTRADIOL. [Concomitant]
     Active Substance: ESTRADIOL
     Dosage: TRANSDERMAL PATCH
  20. AMBIEN [Concomitant]
     Active Substance: ZOLPIDEM TARTRATE
  21. LAMICTAL [Concomitant]
     Active Substance: LAMOTRIGINE
  22. BELSOMRA [Concomitant]
     Active Substance: SUVOREXANT
  23. MELOXICAM. [Concomitant]
     Active Substance: MELOXICAM
  24. LOPERAMIDE HYDROCHLORIDE. [Concomitant]
     Active Substance: LOPERAMIDE HYDROCHLORIDE
     Dosage: UNK
  25. BUSPAR [Concomitant]
     Active Substance: BUSPIRONE HYDROCHLORIDE
     Dosage: 15 MG,BID
  26. TIZANIDINE. [Concomitant]
     Active Substance: TIZANIDINE
     Indication: MUSCLE SPASMS
     Dosage: 2 MG,QD
     Dates: start: 201101
  27. PROGESTERONE. [Concomitant]
     Active Substance: PROGESTERONE
     Indication: MENOPAUSE
     Dosage: 4 ML,QD
     Dates: start: 201303
  28. SYNTHROID [Concomitant]
     Active Substance: LEVOTHYROXINE SODIUM
  29. RESTASIS [Concomitant]
     Active Substance: CYCLOSPORINE
  30. TAMSULOSIN [Concomitant]
     Active Substance: TAMSULOSIN
  31. NEURONTIN [Suspect]
     Active Substance: GABAPENTIN
     Dosage: UNK UNK,UNK
     Route: 065
  32. CALCIUM CARBONATE. [Concomitant]
     Active Substance: CALCIUM CARBONATE
  33. TERIFLUNOMIDE. [Suspect]
     Active Substance: TERIFLUNOMIDE
     Indication: MULTIPLE SCLEROSIS
     Dosage: 7 MG,QD
     Route: 048
     Dates: start: 20131112, end: 20140203
  34. REMERON [Concomitant]
     Active Substance: MIRTAZAPINE
     Indication: DEPRESSION
     Dosage: 45 MG,QD
     Dates: start: 201101
  35. ESTRADIOL. [Concomitant]
     Active Substance: ESTRADIOL
     Indication: MENOPAUSE
     Dosage: UNK UNK,BIW
  36. PHENAZOPYRIDINE. [Concomitant]
     Active Substance: PHENAZOPYRIDINE
  37. OXYCODONE [Concomitant]
     Active Substance: OXYCODONE

REACTIONS (102)
  - Exophthalmos [Unknown]
  - Frequent bowel movements [Unknown]
  - Muscular weakness [Unknown]
  - Musculoskeletal discomfort [Unknown]
  - Hypoaesthesia oral [Recovered/Resolved]
  - Vomiting [Unknown]
  - Weight increased [Recovering/Resolving]
  - Thyroid function test abnormal [Recovered/Resolved]
  - Condition aggravated [Not Recovered/Not Resolved]
  - Elbow operation [Recovered/Resolved]
  - Abdominal distension [Unknown]
  - Speech disorder [Recovered/Resolved]
  - Fall [Unknown]
  - Road traffic accident [Unknown]
  - Sensory disturbance [Unknown]
  - Feeling abnormal [Unknown]
  - Feeling cold [Recovering/Resolving]
  - Cognitive disorder [Unknown]
  - Economic problem [Unknown]
  - Dry mouth [Recovered/Resolved]
  - Carpal tunnel syndrome [Not Recovered/Not Resolved]
  - Dyspnoea [Unknown]
  - Joint injury [Recovered/Resolved]
  - Alopecia [Recovering/Resolving]
  - Joint hyperextension [Unknown]
  - Hypoaesthesia [Not Recovered/Not Resolved]
  - Disturbance in attention [Not Recovered/Not Resolved]
  - Anxiety disorder [Not Recovered/Not Resolved]
  - Product packaging issue [Unknown]
  - Fatigue [Unknown]
  - Anxiety [Recovering/Resolving]
  - Abdominal distension [Not Recovered/Not Resolved]
  - Hormone level abnormal [Unknown]
  - Weight decreased [Unknown]
  - Multiple sclerosis relapse [Unknown]
  - Stress [Not Recovered/Not Resolved]
  - Pain in extremity [Unknown]
  - Peroneal nerve palsy [Not Recovered/Not Resolved]
  - Hypoaesthesia [Not Recovered/Not Resolved]
  - Paraesthesia [Not Recovered/Not Resolved]
  - Arthralgia [Unknown]
  - Weight increased [Not Recovered/Not Resolved]
  - Alopecia [Recovering/Resolving]
  - Injury [Not Recovered/Not Resolved]
  - Attention deficit/hyperactivity disorder [Not Recovered/Not Resolved]
  - Chest injury [Recovered/Resolved]
  - Renal stone removal [Unknown]
  - Vitamin B6 increased [Unknown]
  - Tongue discolouration [Recovered/Resolved]
  - Fall [Not Recovered/Not Resolved]
  - Sensation of foreign body [Recovered/Resolved]
  - Malaise [Unknown]
  - Swelling [Not Recovered/Not Resolved]
  - Diarrhoea [Recovering/Resolving]
  - Renal disorder [Not Recovered/Not Resolved]
  - Muscular weakness [Not Recovered/Not Resolved]
  - Abdominal pain [Not Recovered/Not Resolved]
  - Anxiety [Not Recovered/Not Resolved]
  - Memory impairment [Not Recovered/Not Resolved]
  - Eating disorder [Unknown]
  - Swollen tongue [Recovered/Resolved]
  - Hot flush [Unknown]
  - Gastrooesophageal reflux disease [Unknown]
  - Back pain [Unknown]
  - Weight fluctuation [Unknown]
  - Pain in extremity [Not Recovered/Not Resolved]
  - Condition aggravated [Not Recovered/Not Resolved]
  - Peripheral swelling [Unknown]
  - Oedema peripheral [Unknown]
  - White blood cell count decreased [Not Recovered/Not Resolved]
  - Balance disorder [Not Recovered/Not Resolved]
  - Multiple sclerosis relapse [Unknown]
  - Pain [Unknown]
  - Burning sensation [Unknown]
  - Gastrointestinal disorder [Unknown]
  - Nervousness [Unknown]
  - Loss of employment [Unknown]
  - Hypoaesthesia [Unknown]
  - Abnormal faeces [Not Recovered/Not Resolved]
  - Balance disorder [Recovering/Resolving]
  - Limb discomfort [Recovering/Resolving]
  - Ligament rupture [Not Recovered/Not Resolved]
  - Limb injury [Not Recovered/Not Resolved]
  - Joint injury [Recovered/Resolved]
  - Hypoaesthesia [Unknown]
  - Mobility decreased [Not Recovered/Not Resolved]
  - Gallbladder hypofunction [Recovered/Resolved]
  - Multiple sclerosis [Unknown]
  - Lip dry [Unknown]
  - Hypoaesthesia oral [Recovering/Resolving]
  - Nasopharyngitis [Unknown]
  - Hair growth abnormal [Not Recovered/Not Resolved]
  - Erythema [Unknown]
  - Myalgia [Unknown]
  - Hepatic enzyme increased [Recovered/Resolved]
  - Abdominal discomfort [Recovering/Resolving]
  - Electromyogram abnormal [Not Recovered/Not Resolved]
  - Dysphagia [Recovered/Resolved]
  - Pain [Not Recovered/Not Resolved]
  - Joint stiffness [Not Recovered/Not Resolved]
  - Muscle spasms [Unknown]
  - Weight increased [Not Recovered/Not Resolved]

NARRATIVE: CASE EVENT DATE: 2013
